FAERS Safety Report 9066456 (Version 1)
Quarter: 2013Q1

REPORT INFORMATION
  Report Type: Report from Study
  Country: US (occurrence: US)
  Receive Date: 20130131
  Receipt Date: 20130131
  Transmission Date: 20140127
  Serious: No
  Sender: FDA-Public Use
  Company Number: US-ABBOTT-12P-163-1016663-00

PATIENT
  Age: 52 Year
  Sex: Male

DRUGS (4)
  1. HUMIRA [Suspect]
     Indication: CROHN^S DISEASE
     Dates: start: 20120910
  2. MERCAPTOPURINE [Concomitant]
     Indication: COLITIS ULCERATIVE
     Dosage: 100MG DAILY
  3. LIALDA [Concomitant]
     Indication: COLITIS ULCERATIVE
  4. METOPROLOL ER [Concomitant]
     Indication: ATRIAL FIBRILLATION
     Dosage: 100MG DAILY
     Route: 048

REACTIONS (1)
  - Pruritus [Recovered/Resolved]
